FAERS Safety Report 4688171-3 (Version None)
Quarter: 2005Q2

REPORT INFORMATION
  Report Type: 
  Country: None (occurrence: None)
  Receive Date: 20050609
  Receipt Date: 20050525
  Transmission Date: 20051028
  Serious: Yes (Hospitalization)
  Sender: FDA-Public Use
  Company Number: 2005BI006956

PATIENT
  Age: 64 Year
  Sex: Female

DRUGS (9)
  1. AVONEX [Suspect]
     Indication: MULTIPLE SCLEROSIS
     Dosage: 30 UG;QW; IM
     Route: 030
     Dates: start: 20021101
  2. AVONEX [Suspect]
     Indication: MULTIPLE SCLEROSIS
     Dosage: 30 UG;QW; IM
     Route: 030
     Dates: end: 20050330
  3. ZOCOR [Concomitant]
  4. LEXAPRO [Concomitant]
  5. ASPIRIN [Concomitant]
  6. NITROQUICK [Concomitant]
  7. SYNTHROID [Concomitant]
  8. LIMBITROL [Concomitant]
  9. PROVIGIL [Concomitant]

REACTIONS (1)
  - PNEUMONIA [None]
